FAERS Safety Report 17413662 (Version 1)
Quarter: 2020Q1

REPORT INFORMATION
  Report Type: Spontaneous
  Country: US (occurrence: US)
  Receive Date: 20200213
  Receipt Date: 20200213
  Transmission Date: 20200409
  Serious: Yes (Other)
  Sender: FDA-Public Use
  Company Number: None

PATIENT
  Age: 28 Year
  Sex: Female
  Weight: 65.25 kg

DRUGS (3)
  1. SUDAFED [Concomitant]
     Active Substance: PSEUDOEPHEDRINE HYDROCHLORIDE
  2. TYLENOL [Concomitant]
     Active Substance: ACETAMINOPHEN
  3. AZITHROMYCIN TABLETS 250 MG [Suspect]
     Active Substance: AZITHROMYCIN
     Indication: SINUSITIS
     Dosage: ?          QUANTITY:1 TABLET(S);?
     Route: 048
     Dates: start: 20200207, end: 20200208

REACTIONS (6)
  - Nausea [None]
  - Product substitution issue [None]
  - Rash macular [None]
  - Hypersensitivity [None]
  - Anaphylactic reaction [None]
  - Swollen tongue [None]

NARRATIVE: CASE EVENT DATE: 20200207
